FAERS Safety Report 5943793-4 (Version None)
Quarter: 2008Q4

REPORT INFORMATION
  Report Type: 
  Country: None (occurrence: None)
  Receive Date: 20081104
  Receipt Date: 20081022
  Transmission Date: 20090506
  Serious: Yes (Hospitalization)
  Sender: FDA-Public Use
  Company Number: 231011K08USA

PATIENT
  Age: 50 Year
  Sex: Male
  Weight: 124 kg

DRUGS (4)
  1. REBIF [Suspect]
     Indication: MULTIPLE SCLEROSIS
     Dosage: 44 MCG, 3 IN 1 WEEKS, SUBCUTANEOUS
     Route: 057
     Dates: start: 20080307
  2. NAPROXEN [Suspect]
     Indication: ARTHRITIS
     Dosage: 400 MG, 3 IN 1 DAYS, ORAL
     Route: 048
     Dates: end: 20081001
  3. LOPRESSOR [Concomitant]
  4. NORVASC [Concomitant]

REACTIONS (2)
  - ANAEMIA [None]
  - HAEMORRHAGE [None]
